FAERS Safety Report 5294397-0 (Version None)
Quarter: 2007Q2

REPORT INFORMATION
  Report Type: 
  Country: None (occurrence: None)
  Receive Date: 20070412
  Receipt Date: 20070402
  Transmission Date: 20071010
  Serious: Yes (Hospitalization)
  Sender: FDA-Public Use
  Company Number: HQWYE444203APR07

PATIENT
  Sex: Male
  Weight: 74.91 kg

DRUGS (2)
  1. PROTONIX [Suspect]
     Route: 048
     Dates: start: 20061101
  2. PROTONIX [Suspect]
     Route: 048

REACTIONS (4)
  - COELIAC DISEASE [None]
  - DIARRHOEA [None]
  - SYNCOPE [None]
  - VOMITING [None]
